FAERS Safety Report 8986068 (Version 1)
Quarter: 2012Q4

REPORT INFORMATION
  Report Type: Spontaneous
  Country: US (occurrence: None)
  Receive Date: 20121218
  Receipt Date: 20121218
  Transmission Date: 20130627
  Serious: Yes (Hospitalization)
  Sender: FDA-Public Use
  Company Number: FK201203929

PATIENT
  Age: 66 Year
  Sex: Male

DRUGS (4)
  1. ETOPOSIDE [Suspect]
  2. CYCLOPHOSPHAMIDE [Suspect]
  3. PREDNISONE (PREDNISONE) [Suspect]
  4. PROCARBAZINE [Suspect]

REACTIONS (3)
  - Osteomyelitis [None]
  - Cryptococcosis [None]
  - Meningitis cryptococcal [None]
